FAERS Safety Report 4501099-4 (Version None)
Quarter: 2004Q4

REPORT INFORMATION
  Report Type: 
  Country: None (occurrence: None)
  Receive Date: 20041110
  Receipt Date: 20041029
  Transmission Date: 20050328
  Serious: Yes (Hospitalization)
  Sender: FDA-Public Use
  Company Number: 2004242407US

PATIENT
  Age: 53 Year
  Sex: Female
  Weight: 82.5 kg

DRUGS (7)
  1. CELEBREX [Suspect]
     Indication: OSTEOARTHRITIS
     Dosage: 100 MG, BID, ORAL
     Route: 048
     Dates: start: 20030101, end: 20030101
  2. TRAZODONE HCL [Concomitant]
  3. FLEXERIL [Concomitant]
  4. DIOVAN [Concomitant]
  5. LASIX [Concomitant]
  6. XANAX [Concomitant]
  7. TUMS (MAGNESIUM CARBONATE, MAGNESIUM TRISILICATE) [Concomitant]

REACTIONS (2)
  - ABDOMINAL DISTENSION [None]
  - VOMITING [None]
